FAERS Safety Report 4407534-4 (Version None)
Quarter: 2004Q3

REPORT INFORMATION
  Report Type: 
  Country: None (occurrence: None)
  Receive Date: 20040721
  Receipt Date: 20040624
  Transmission Date: 20050211
  Serious: No
  Sender: FDA-Public Use
  Company Number: D01200402351

PATIENT
  Age: 62 Year
  Sex: Male

DRUGS (6)
  1. FONDAPARINUX [Suspect]
     Indication: MYOCARDIAL INFARCTION
     Dosage: 2.5 MG QD SUBCUTANEOUS
     Route: 058
     Dates: start: 20031008, end: 20031012
  2. ASPIRIN [Concomitant]
  3. CLOPIDOGREL [Concomitant]
  4. ATENOLOL [Concomitant]
  5. ENALAPRIL MALEATE [Concomitant]
  6. SIMVASTATIN [Concomitant]

REACTIONS (2)
  - CATHETER RELATED COMPLICATION [None]
  - CORONARY ARTERY THROMBOSIS [None]
